FAERS Safety Report 10461391 (Version 4)
Quarter: 2016Q1

REPORT INFORMATION
  Report Type: Not Available
  Country: GB (occurrence: GB)
  Receive Date: 20140918
  Receipt Date: 20160216
  Transmission Date: 20160525
  Serious: Yes (Death)
  Sender: FDA-Public Use
  Company Number: GB-BEH-2013038318

PATIENT
  Age: 76 Year
  Sex: Female
  Weight: 60 kg

DRUGS (6)
  1. RIASTAP [Suspect]
     Active Substance: FIBRINOGEN HUMAN
     Indication: HAEMORRHAGE
     Dosage: 9.4 G RESP. 10 G REPORTED
     Route: 042
     Dates: start: 20130923, end: 20130923
  2. PLATELETS [Concomitant]
     Active Substance: HUMAN PLATELET, ALLOGENIC
  3. ANAESTHETICS [Concomitant]
     Active Substance: UNSPECIFIED INGREDIENT
  4. FRESH FROZEN PLASMA [Concomitant]
     Active Substance: HUMAN PLASMA
  5. RIASTAP [Suspect]
     Active Substance: FIBRINOGEN HUMAN
     Indication: HAEMORRHAGE
     Dosage: 9.4 G RESP. 10 G REPORTED
     Route: 042
     Dates: start: 20130923, end: 20130923
  6. TRASYLOL [Suspect]
     Active Substance: APROTININ
     Indication: HAEMORRHAGE
     Route: 042
     Dates: start: 20130923, end: 20130923

REACTIONS (4)
  - Thrombosis [Fatal]
  - Accidental overdose [Unknown]
  - Graft thrombosis [Fatal]
  - Dose calculation error [Unknown]

NARRATIVE: CASE EVENT DATE: 20130923
